FAERS Safety Report 8780004 (Version 1)
Quarter: 2012Q4

REPORT INFORMATION
  Report Type: Spontaneous
  Country: US (occurrence: None)
  Receive Date: 20120831
  Receipt Date: 20120831
  Transmission Date: 20130627
  Serious: Yes (Other)
  Sender: FDA-Public Use
  Company Number: None

PATIENT
  Age: 3 Year
  Sex: Female
  Weight: 10.8 kg

DRUGS (2)
  1. LEVETIRACETAM [Suspect]
     Dosage: 6ml - 3ml am, 3ml pm
     Route: 048
     Dates: start: 20120809, end: 20120818
  2. LEVETIRACETAM [Suspect]
     Dosage: 6ml - 3ml am, 3ml pm
     Route: 048
     Dates: start: 20120809, end: 20120818

REACTIONS (3)
  - Product substitution issue [None]
  - Treatment failure [None]
  - Convulsion [None]
